FAERS Safety Report 9592211 (Version 2)
Quarter: 2013Q4

REPORT INFORMATION
  Report Type: Spontaneous
  Country: US (occurrence: US)
  Receive Date: 20131004
  Receipt Date: 20131023
  Transmission Date: 20140711
  Serious: Yes (Hospitalization)
  Sender: FDA-Public Use
  Company Number: US-BIOGENIDEC-2013BI095574

PATIENT
  Age: 64 Year
  Sex: Female

DRUGS (11)
  1. AVONEX [Suspect]
     Indication: MULTIPLE SCLEROSIS
     Route: 030
     Dates: start: 20080122
  2. CELEBREX [Concomitant]
  3. CLARITIN [Concomitant]
  4. GLUCOSAMINE [Concomitant]
  5. CHONDROITIN COMPLEX [Concomitant]
  6. LISINOPRIL [Concomitant]
  7. LYCOPENE [Concomitant]
  8. SERTRALINE HCL [Concomitant]
  9. SUCRALFATE [Concomitant]
  10. CENTRUM SILVER [Concomitant]
  11. MSM GLUCOSAMINE COMPLEX [Concomitant]

REACTIONS (2)
  - Tendon rupture [Unknown]
  - Fall [Recovered/Resolved]
